FAERS Safety Report 9049956 (Version 3)
Quarter: 2025Q2

REPORT INFORMATION
  Report Type: Spontaneous
  Country: US (occurrence: US)
  Receive Date: 20130205
  Receipt Date: 20250423
  Transmission Date: 20250716
  Serious: Yes (Hospitalization, Other)
  Sender: ROCHE
  Company Number: US-ROCHE-1187692

PATIENT
  Age: 59 Year
  Sex: Male

DRUGS (2)
  1. IBANDRONIC ACID [Suspect]
     Active Substance: IBANDRONIC ACID
     Indication: Osteoporosis
     Route: 065
  2. FOSAMAX [Suspect]
     Active Substance: ALENDRONATE SODIUM
     Indication: Osteoporosis
     Route: 065

REACTIONS (2)
  - Femur fracture [Unknown]
  - Emotional distress [Unknown]

NARRATIVE: CASE EVENT DATE: 20100101
